FAERS Safety Report 6192497-4 (Version None)
Quarter: 2009Q2

REPORT INFORMATION
  Report Type: 
  Country: None (occurrence: None)
  Receive Date: 20090518
  Receipt Date: 20071212
  Transmission Date: 20091009
  Serious: Yes (Other)
  Sender: FDA-Public Use
  Company Number: US-ASTRAZENECA-2007UW12059

PATIENT
  Age: 17033 Day
  Sex: Female
  Weight: 102.1 kg

DRUGS (20)
  1. SEROQUEL [Suspect]
     Indication: DEPRESSION
     Route: 048
     Dates: start: 20030901, end: 20060901
  2. SEROQUEL [Suspect]
     Indication: SCHIZOPHRENIA
     Route: 048
     Dates: start: 20030901, end: 20060901
  3. SEROQUEL [Suspect]
     Route: 048
     Dates: start: 20060118
  4. SEROQUEL [Suspect]
     Route: 048
     Dates: start: 20060118
  5. RISPERDAL [Concomitant]
     Route: 065
     Dates: start: 20020101, end: 20030101
  6. LIPITOR [Concomitant]
     Route: 065
  7. ZYRTEC [Concomitant]
     Route: 065
  8. HYDROCHLOROTHIAZIDE [Concomitant]
     Route: 065
  9. VERAPAMIL [Concomitant]
     Route: 048
  10. ACYCLOVIR [Concomitant]
     Route: 065
  11. NORVASC [Concomitant]
     Route: 065
  12. FLUNISOLIDE [Concomitant]
     Route: 065
  13. GLUCOPHAGE XR [Concomitant]
     Route: 065
  14. AZMACORT [Concomitant]
     Route: 065
  15. ALBUTEROL [Concomitant]
     Route: 065
  16. METOPROLOL [Concomitant]
     Route: 065
  17. PREDNISONE [Concomitant]
     Route: 065
  18. LOPROX [Concomitant]
     Route: 065
  19. METRONIDAZOLE [Concomitant]
     Route: 065
  20. NEXIUM [Concomitant]
     Route: 065

REACTIONS (15)
  - APNOEA [None]
  - BACK PAIN [None]
  - CHEST PAIN [None]
  - CHRONIC OBSTRUCTIVE PULMONARY DISEASE [None]
  - CONJUNCTIVITIS [None]
  - DIZZINESS [None]
  - OROPHARYNGEAL PAIN [None]
  - OSTEOARTHRITIS [None]
  - PANIC DISORDER WITH AGORAPHOBIA [None]
  - PHARYNGITIS [None]
  - POST-TRAUMATIC STRESS DISORDER [None]
  - TYPE 2 DIABETES MELLITUS [None]
  - VAGINAL DISCHARGE [None]
  - VISION BLURRED [None]
  - VULVOVAGINAL PRURITUS [None]
